FAERS Safety Report 16526369 (Version 4)
Quarter: 2019Q3

REPORT INFORMATION
  Report Type: Spontaneous
  Country: DK (occurrence: DK)
  Receive Date: 20190703
  Receipt Date: 20190802
  Transmission Date: 20191004
  Serious: Yes (Hospitalization, Other)
  Sender: FDA-Public Use
  Company Number: DK-BRISTOL-MYERS SQUIBB COMPANY-17409228

PATIENT
  Age: 39 Year
  Sex: Male

DRUGS (5)
  1. STOCRIN [Suspect]
     Active Substance: EFAVIRENZ
     Indication: HIV INFECTION
     Dosage: 600 MILLIGRAM, QD
     Route: 065
  2. DICLOXACILLIN [Concomitant]
     Active Substance: DICLOXACILLIN
     Indication: PRODUCT USED FOR UNKNOWN INDICATION
     Dosage: 1 GRAM, QID
     Route: 065
  3. SULFAMETHOXAZOLE AND TRIMETHOPRIM [Concomitant]
     Active Substance: SULFAMETHOXAZOLE\TRIMETHOPRIM
     Indication: PNEUMOCYSTIS JIROVECII PNEUMONIA
     Dosage: 1600 /320 MG, QID
     Route: 065
  4. TENOFOVIR [Suspect]
     Active Substance: TENOFOVIR
     Indication: HIV INFECTION
     Dosage: 245 MILLIGRAM, 1 DAY
     Route: 065
  5. EMTRICITABINE [Suspect]
     Active Substance: EMTRICITABINE
     Indication: HIV INFECTION
     Dosage: 200 MG, UNK
     Route: 065

REACTIONS (9)
  - Immune reconstitution inflammatory syndrome [Recovering/Resolving]
  - Bursitis infective [Recovering/Resolving]
  - Post-traumatic stress disorder [Unknown]
  - Arthralgia [Unknown]
  - Bursitis [Recovered/Resolved]
  - Depression [Unknown]
  - Atypical mycobacterial infection [Recovered/Resolved]
  - Scar [Unknown]
  - Mycobacterial infection [Unknown]
